FAERS Safety Report 23075380 (Version 2)
Quarter: 2023Q4

REPORT INFORMATION
  Report Type: Spontaneous
  Country: US (occurrence: US)
  Receive Date: 20231017
  Receipt Date: 20231107
  Transmission Date: 20240110
  Serious: No
  Sender: FDA-Public Use
  Company Number: US-SANOFI-01801167

PATIENT
  Sex: Male

DRUGS (1)
  1. DUPIXENT [Suspect]
     Active Substance: DUPILUMAB
     Indication: Eosinophilic oesophagitis
     Dosage: UNK
     Dates: start: 20220914

REACTIONS (8)
  - Arthropod bite [Unknown]
  - Pain [Unknown]
  - Swelling [Unknown]
  - Arthropod sting [Unknown]
  - Infected bite [Unknown]
  - Pain [Unknown]
  - Allergy to arthropod sting [Unknown]
  - Condition aggravated [Unknown]
